FAERS Safety Report 4752637-8 (Version None)
Quarter: 2005Q3

REPORT INFORMATION
  Report Type: 
  Country: None (occurrence: None)
  Receive Date: 20050825
  Receipt Date: 20050810
  Transmission Date: 20060218
  Serious: Yes (Hospitalization, Other)
  Sender: FDA-Public Use
  Company Number: 200517326GDDC

PATIENT
  Age: 21 Year
  Sex: Male

DRUGS (5)
  1. GLIBENCLAMIDE [Suspect]
     Indication: HYPERKALAEMIA
     Dosage: ROUTE: NASOGASTRIC
     Route: 050
  2. CYCLOSPORINE [Concomitant]
     Indication: PROPHYLAXIS AGAINST TRANSPLANT REJECTION
  3. DEXTROSE [Concomitant]
     Indication: HYPERKALAEMIA
     Route: 042
  4. INSULIN [Concomitant]
     Indication: HYPERKALAEMIA
     Route: 042
  5. CALCIUM POLYSTYRENE SULFONATE [Concomitant]
     Indication: HYPERKALAEMIA

REACTIONS (1)
  - PRE-EXISTING CONDITION IMPROVED [None]
